FAERS Safety Report 4595140-0 (Version None)
Quarter: 2005Q1

REPORT INFORMATION
  Report Type: 
  Country: None (occurrence: None)
  Receive Date: 20050223
  Receipt Date: 20050208
  Transmission Date: 20050727
  Serious: Yes (Hospitalization)
  Sender: FDA-Public Use
  Company Number: MPS1-10320

PATIENT
  Age: 3 Year
  Sex: Female
  Weight: 14.8 kg

DRUGS (1)
  1. ALDURAZYME [Suspect]
     Indication: MUCOPOLYSACCHARIDOSIS IH/S
     Dosage: 5.8 MG QWK IV
     Route: 042
     Dates: start: 20030101

REACTIONS (1)
  - PNEUMONIA [None]
